FAERS Safety Report 4427212-5 (Version None)
Quarter: 2004Q3

REPORT INFORMATION
  Report Type: 
  Country: None (occurrence: None)
  Receive Date: 20040726
  Receipt Date: 20040419
  Transmission Date: 20050211
  Serious: No
  Sender: FDA-Public Use
  Company Number: USA031049889

PATIENT
  Age: 77 Year
  Sex: Female

DRUGS (10)
  1. FORTEO [Suspect]
     Indication: OSTEOPOROSIS
     Dosage: 20 UG/DAY
     Dates: start: 20031013
  2. LEVAQUIN [Concomitant]
  3. VASOTEC [Concomitant]
  4. VASERETIC [Concomitant]
  5. NORVASC [Concomitant]
  6. K-DUR 10 [Concomitant]
  7. VIACTIV [Concomitant]
  8. CORGARD [Concomitant]
  9. XALATAN [Concomitant]
  10. XANAX [Concomitant]

REACTIONS (4)
  - ABDOMINAL DISTENSION [None]
  - FLATULENCE [None]
  - HALLUCINATION, VISUAL [None]
  - INSOMNIA [None]
